FAERS Safety Report 14740665 (Version 1)
Quarter: 2018Q2

REPORT INFORMATION
  Report Type: Spontaneous
  Country: CN (occurrence: CN)
  Receive Date: 20180410
  Receipt Date: 20180410
  Transmission Date: 20180711
  Serious: Yes (Other)
  Sender: FDA-Public Use
  Company Number: CN-BAYER-2018-067803

PATIENT

DRUGS (1)
  1. MOXIFLOXACIN IV [Suspect]
     Active Substance: MOXIFLOXACIN
     Dosage: UNK
     Route: 041

REACTIONS (2)
  - Infusion site haemorrhage [None]
  - Pain [Not Recovered/Not Resolved]
